FAERS Safety Report 20034672 (Version 1)
Quarter: 2021Q4

REPORT INFORMATION
  Report Type: Spontaneous
  Country: DE (occurrence: None)
  Receive Date: 20211104
  Receipt Date: 20211104
  Transmission Date: 20220303
  Serious: Yes (Other)
  Sender: FDA-Public Use
  Company Number: 2021A790362

PATIENT
  Age: 42 Year
  Sex: Male

DRUGS (3)
  1. SYMBICORT [Suspect]
     Active Substance: BUDESONIDE\FORMOTEROL FUMARATE DIHYDRATE
     Indication: Asthma
     Dosage: 320/9 TWO TIMES A DAY
     Route: 055
  2. FASENRA [Concomitant]
     Active Substance: BENRALIZUMAB
     Dosage: EVERY 4 WEEKS , THEN EVERY 8 WEEKS
  3. SPIRIVA [Concomitant]
     Active Substance: TIOTROPIUM BROMIDE MONOHYDRATE
     Dosage: 2.5 2 0 0

REACTIONS (1)
  - Asthma [Unknown]
